FAERS Safety Report 12347264 (Version 1)
Quarter: 2016Q2

REPORT INFORMATION
  Report Type: Spontaneous
  Country: US (occurrence: None)
  Receive Date: 20160506
  Receipt Date: 20160506
  Transmission Date: 20160815
  Serious: Yes (Disabling)
  Sender: FDA-Public Use
  Company Number: None

PATIENT
  Age: 74 Year
  Sex: Female

DRUGS (1)
  1. AMIKACIN 500 MG/2 ML VIAL [Suspect]
     Active Substance: AMIKACIN SULFATE
     Dosage: 250 MG 3 TIMES A WEEK VIA NEBULIZER
     Dates: start: 20140427

REACTIONS (1)
  - Deafness [None]
